FAERS Safety Report 6077490-4 (Version None)
Quarter: 2009Q1

REPORT INFORMATION
  Report Type: 
  Country: None (occurrence: None)
  Receive Date: 20090213
  Receipt Date: 20090202
  Transmission Date: 20090719
  Serious: No
  Sender: FDA-Public Use
  Company Number: A0763037A

PATIENT
  Age: 35 Year
  Sex: Female
  Weight: 65.9 kg

DRUGS (3)
  1. TREXIMET [Suspect]
     Indication: MIGRAINE
     Dosage: 1TAB SINGLE DOSE
     Route: 048
     Dates: start: 20081108, end: 20081108
  2. BUPROPION HCL [Concomitant]
     Indication: DEPRESSION
     Dosage: 300MG PER DAY
     Route: 048
  3. ORTHO TRI-CYCLEN [Concomitant]
     Route: 048

REACTIONS (4)
  - ANXIETY [None]
  - CHEST DISCOMFORT [None]
  - CHEST PAIN [None]
  - DYSPNOEA [None]
